FAERS Safety Report 5927425-7 (Version None)
Quarter: 2008Q4

REPORT INFORMATION
  Report Type: 
  Country: None (occurrence: None)
  Receive Date: 20081022
  Receipt Date: 20081022
  Transmission Date: 20090506
  Serious: Yes (Hospitalization)
  Sender: FDA-Public Use
  Company Number: None

PATIENT
  Age: 57 Year
  Sex: Female
  Weight: 65.318 kg

DRUGS (5)
  1. MS CONTIN [Suspect]
     Indication: PAIN
     Dosage: 15 MG Q 4-6H PO
     Route: 048
     Dates: start: 20080904
  2. HYDROCODONE [Suspect]
     Indication: PAIN
     Dosage: 30 MG Q4H PO
     Route: 048
     Dates: start: 20080904
  3. ERBITUX [Concomitant]
  4. GEMCITABINE [Concomitant]
  5. OXALIPLATIN [Concomitant]

REACTIONS (1)
  - FAECALOMA [None]
